FAERS Safety Report 12680307 (Version 1)
Quarter: 2016Q3

REPORT INFORMATION
  Report Type: Spontaneous
  Country: US (occurrence: None)
  Receive Date: 20160823
  Receipt Date: 20160823
  Transmission Date: 20161109
  Serious: No
  Sender: FDA-Public Use
  Company Number: None

PATIENT
  Age: 61 Year
  Sex: Female

DRUGS (7)
  1. MULTIVITAMIN [Concomitant]
     Active Substance: VITAMINS
  2. BENDAMUSTINE [Suspect]
     Active Substance: BENDAMUSTINE
     Indication: NEOPLASM MALIGNANT
     Route: 042
     Dates: start: 20160517
  3. PREDNISONE. [Concomitant]
     Active Substance: PREDNISONE
  4. LORAZAPAM [Suspect]
     Active Substance: LORAZEPAM
  5. ONDANSETRON [Concomitant]
     Active Substance: ONDANSETRON
  6. PROCHLORPERAZINE. [Concomitant]
     Active Substance: PROCHLORPERAZINE
  7. CHOLECALCIFEROL [Concomitant]
     Active Substance: CHOLECALCIFEROL

REACTIONS (2)
  - Corneal oedema [None]
  - Eye complication associated with device [None]

NARRATIVE: CASE EVENT DATE: 20160525
